FAERS Safety Report 8170162-1 (Version None)
Quarter: 2012Q1

REPORT INFORMATION
  Report Type: 
  Country: None (occurrence: None)
  Receive Date: 20120228
  Receipt Date: 20120222
  Transmission Date: 20120608
  Serious: Yes (Hospitalization)
  Sender: FDA-Public Use
  Company Number: PHHY2012AR015719

PATIENT
  Sex: Female

DRUGS (2)
  1. CLONAZEPAM [Concomitant]
  2. CLOZAPINE [Suspect]
     Indication: SCHIZOPHRENIA
     Dosage: UNK
     Dates: start: 20001101

REACTIONS (4)
  - RESPIRATORY TRACT INFECTION [None]
  - BILIARY COLIC [None]
  - DIARRHOEA [None]
  - DEHYDRATION [None]
